FAERS Safety Report 17614549 (Version 1)
Quarter: 2020Q2

REPORT INFORMATION
  Report Type: Spontaneous
  Country: IT (occurrence: IT)
  Receive Date: 20200402
  Receipt Date: 20200402
  Transmission Date: 20200713
  Serious: Yes (Death, Other)
  Sender: FDA-Public Use
  Company Number: IT-SUN PHARMACEUTICAL INDUSTRIES LTD-2020R1-240455

PATIENT
  Age: 53 Year
  Sex: Male

DRUGS (2)
  1. DEXRAZOXANE. [Suspect]
     Active Substance: DEXRAZOXANE
     Indication: MYXOID LIPOSARCOMA
     Dosage: UNK, 2 CYCLES
     Route: 065
  2. DOXORUBICIN [Suspect]
     Active Substance: DOXORUBICIN
     Indication: MYXOID LIPOSARCOMA
     Dosage: UNK, 2 CYCLES
     Route: 065

REACTIONS (1)
  - Malignant neoplasm progression [Unknown]
